FAERS Safety Report 5558628-1 (Version None)
Quarter: 2007Q4

REPORT INFORMATION
  Report Type: 
  Country: None (occurrence: None)
  Receive Date: 20071214
  Receipt Date: 20071204
  Transmission Date: 20080405
  Serious: Yes (Other)
  Sender: FDA-Public Use
  Company Number: JP-PFIZER INC-2007102729

PATIENT
  Age: 74 Year
  Sex: Male

DRUGS (5)
  1. ZITHROMAX [Suspect]
     Indication: NASOPHARYNGITIS
     Dosage: DAILY DOSE:500MG
     Route: 048
     Dates: start: 20071129, end: 20071130
  2. ALL OTHER THERAPEUTIC PRODUCTS [Concomitant]
  3. NIFLAN [Concomitant]
  4. HUSCODE [Concomitant]
  5. HUSTOSIL [Concomitant]
     Dates: start: 20071129, end: 20071129

REACTIONS (5)
  - ANOREXIA [None]
  - DYSPNOEA [None]
  - PYREXIA [None]
  - RASH [None]
  - SUPRAVENTRICULAR TACHYCARDIA [None]
